FAERS Safety Report 22526824 (Version 1)
Quarter: 2023Q2

REPORT INFORMATION
  Report Type: Spontaneous
  Country: NO (occurrence: NO)
  Receive Date: 20230606
  Receipt Date: 20230606
  Transmission Date: 20230721
  Serious: Yes (Hospitalization, Other)
  Sender: FDA-Public Use
  Company Number: None

PATIENT
  Age: 55 Year
  Sex: Male

DRUGS (3)
  1. SULFUR HEXAFLUORIDE [Suspect]
     Active Substance: SULFUR HEXAFLUORIDE
     Indication: Ultrasound scan
     Dosage: 2 ML, SINGLE
     Route: 042
     Dates: start: 20230323, end: 20230323
  2. SULFUR HEXAFLUORIDE [Suspect]
     Active Substance: SULFUR HEXAFLUORIDE
     Indication: Ultrasound scan
     Dosage: 2 ML, SINGLE
     Route: 042
     Dates: start: 20230323, end: 20230323
  3. SULFUR HEXAFLUORIDE [Suspect]
     Active Substance: SULFUR HEXAFLUORIDE
     Indication: Ultrasound scan
     Dosage: 2 ML, SINGLE
     Route: 042
     Dates: start: 20230323, end: 20230323

REACTIONS (8)
  - Paraesthesia [Unknown]
  - Nausea [Unknown]
  - Cold sweat [Unknown]
  - Restlessness [Unknown]
  - Anaphylactic reaction [Unknown]
  - Hypotension [Unknown]
  - Bradycardia [Unknown]
  - Atrioventricular block complete [Unknown]

NARRATIVE: CASE EVENT DATE: 20230323
